FAERS Safety Report 8971722 (Version 2)
Quarter: 2013Q1

REPORT INFORMATION
  Report Type: Spontaneous
  Country: BG (occurrence: BG)
  Receive Date: 20121217
  Receipt Date: 20121221
  Transmission Date: 20140127
  Serious: Yes (Death, Life-Threatening, Hospitalization, Other)
  Sender: FDA-Public Use
  Company Number: BG-ASTRAZENECA-2012SE92823

PATIENT
  Age: 31046 Day
  Sex: Male

DRUGS (7)
  1. BRILIQUE [Suspect]
     Indication: ACUTE CORONARY SYNDROME
     Route: 048
  2. AMARYL [Concomitant]
  3. DILATREND [Concomitant]
  4. EXFORGE [Concomitant]
     Dosage: 1 TABLET DAILY
  5. SPIRONOLACTONE [Concomitant]
     Dosage: 1 TABLET DAILY
  6. ASPIRIN PROTECT [Concomitant]
     Dosage: 1 TABLET DAILY
  7. ANTIHYPERTENSIVES [Concomitant]

REACTIONS (5)
  - Haemorrhagic stroke [Fatal]
  - Gastric ulcer haemorrhage [Fatal]
  - Coma [Recovered/Resolved]
  - Bronchopneumonia [Unknown]
  - Shock haemorrhagic [Fatal]
